FAERS Safety Report 20441390 (Version 1)
Quarter: 2022Q1

REPORT INFORMATION
  Report Type: Report from Study
  Country: US (occurrence: US)
  Receive Date: 20220208
  Receipt Date: 20220208
  Transmission Date: 20220424
  Serious: Yes (Life-Threatening)
  Sender: FDA-Public Use
  Company Number: US-BEH-2022141661

PATIENT
  Age: 34 Year
  Sex: Female

DRUGS (1)
  1. PRIVIGEN [Suspect]
     Active Substance: HUMAN IMMUNOGLOBULIN G
     Route: 065

REACTIONS (2)
  - Obstructive airways disorder [Unknown]
  - Throat tightness [Unknown]

NARRATIVE: CASE EVENT DATE: 20220110
